FAERS Safety Report 9746248 (Version 1)
Quarter: 2013Q4

REPORT INFORMATION
  Report Type: Spontaneous
  Country: MA (occurrence: MA)
  Receive Date: 20131211
  Receipt Date: 20131211
  Transmission Date: 20140711
  Serious: Yes (Other)
  Sender: FDA-Public Use
  Company Number: MA-PFIZER INC-2013350635

PATIENT
  Sex: Female

DRUGS (1)
  1. TAHOR [Suspect]
     Dosage: 40 MG, UNK

REACTIONS (1)
  - Systemic lupus erythematosus [Unknown]
